FAERS Safety Report 17156434 (Version 3)
Quarter: 2020Q3

REPORT INFORMATION
  Report Type: Report from Study
  Country: IT (occurrence: IT)
  Receive Date: 20191216
  Receipt Date: 20200128
  Transmission Date: 20201104
  Serious: Yes (Other)
  Sender: FDA-Public Use
  Company Number: IT-ACCORD-165593

PATIENT
  Age: 46 Year
  Sex: Female

DRUGS (5)
  1. SERACTIL [Suspect]
     Active Substance: DEXIBUPROFEN
     Dosage: STRENGTH : 400 MG
     Route: 048
     Dates: start: 20191126, end: 20191126
  2. CIPROFLOXACIN. [Suspect]
     Active Substance: CIPROFLOXACIN
     Route: 048
     Dates: start: 20191126, end: 20191126
  3. ESCITALOPRAM [Suspect]
     Active Substance: ESCITALOPRAM OXALATE
     Route: 048
     Dates: start: 20191126, end: 20191126
  4. TACHIDOL [Suspect]
     Active Substance: ACETAMINOPHEN\CODEINE PHOSPHATE
     Dosage: STRENGTH  500 MG / 30 MG
     Route: 048
     Dates: start: 20191126, end: 20191126
  5. ETORICOXIB. [Suspect]
     Active Substance: ETORICOXIB
     Route: 048
     Dates: start: 20191126, end: 20191126

REACTIONS (2)
  - Drug abuse [Unknown]
  - Sopor [Recovering/Resolving]

NARRATIVE: CASE EVENT DATE: 20191126
